FAERS Safety Report 8802657 (Version 2)
Quarter: 2012Q4

REPORT INFORMATION
  Report Type: 
  Country: US (occurrence: US)
  Receive Date: 20120921
  Receipt Date: 20120925
  Transmission Date: 20130627
  Serious: Yes (Other)
  Sender: FDA-Public Use
  Company Number: US-PFIZER INC-2012231507

PATIENT
  Age: 40 Year
  Sex: Male
  Weight: 75.74 kg

DRUGS (5)
  1. LYRICA [Suspect]
     Indication: ALCOHOLISM
     Dosage: 4 to 5 capsules of 150mg a day
     Dates: start: 201209
  2. LYRICA [Suspect]
     Dosage: 150 mg, 3x/day
     Dates: start: 201209
  3. DEPAKOTE [Suspect]
     Indication: BIPOLAR DISORDER
     Dosage: 150 mg, 2x/day
  4. ZOLOFT [Concomitant]
     Indication: DEPRESSION
     Dosage: 50 mg daily
  5. REMERON [Concomitant]
     Indication: SLEEP DISORDER
     Dosage: 15 mg daily

REACTIONS (10)
  - Liver injury [Unknown]
  - Weight increased [Unknown]
  - Off label use [Unknown]
  - Incorrect dose administered [Unknown]
  - Abstains from alcohol [Unknown]
  - Ex-tobacco user [Unknown]
  - Bipolar disorder relapse prophylaxis [Unknown]
  - Therapeutic response unexpected [Unknown]
  - Weight decreased [Unknown]
  - Drug ineffective [Unknown]
